FAERS Safety Report 14944521 (Version 1)
Quarter: 2018Q2

REPORT INFORMATION
  Report Type: Other
  Country: FR (occurrence: FR)
  Receive Date: 20180529
  Receipt Date: 20180529
  Transmission Date: 20180711
  Serious: Yes (Hospitalization, Other)
  Sender: FDA-Public Use
  Company Number: FR-MACLEODS PHARMACEUTICALS US LTD-MAC2018013736

PATIENT

DRUGS (7)
  1. UVEDOSE 100 000 UI, ORAL SOLUTION IN AMPOULE [Concomitant]
     Indication: PRODUCT USED FOR UNKNOWN INDICATION
     Dosage: UNK, ORAL SOLUTION IN AMPOULE
     Route: 065
  2. STILNOX 10 MG, DIVISIBLE COATED TABLET [Suspect]
     Active Substance: ZOLPIDEM TARTRATE
     Indication: SUICIDE ATTEMPT
     Dosage: DIVISIBLE COATED TABLET
     Route: 048
     Dates: start: 20180331, end: 20180331
  3. TENORMINE 50 MG DIVISIBLE COATED TABLET [Suspect]
     Active Substance: ATENOLOL
     Indication: SUICIDE ATTEMPT
     Dosage: DIVISIBLE COATED TABLET
     Route: 048
     Dates: start: 20180331, end: 20180331
  4. SIMVASTATINE [Suspect]
     Active Substance: SIMVASTATIN
     Indication: SUICIDE ATTEMPT
     Dosage: UNK
     Route: 048
     Dates: start: 20180331, end: 20180331
  5. FEMARA 2.5 MG COATED TABLET [Concomitant]
     Indication: SUICIDE ATTEMPT
     Dosage: UNK, COATED TABLET
     Route: 048
     Dates: start: 20180331, end: 20180331
  6. IRBESARTAN. [Suspect]
     Active Substance: IRBESARTAN
     Indication: SUICIDE ATTEMPT
     Dosage: UNK
     Route: 048
     Dates: start: 20180331, end: 20180331
  7. EUTHYROX 50 MICROGRAMS TABLETS [Concomitant]
     Indication: SUICIDE ATTEMPT
     Route: 048
     Dates: start: 20180331, end: 20180331

REACTIONS (4)
  - Renal failure [Recovered/Resolved]
  - Sinus bradycardia [Recovered/Resolved]
  - Suicide attempt [None]
  - Hypotension [Recovered/Resolved]

NARRATIVE: CASE EVENT DATE: 20180403
